FAERS Safety Report 9698206 (Version 2)
Quarter: 2013Q4

REPORT INFORMATION
  Report Type: Spontaneous
  Country: DE (occurrence: DE)
  Receive Date: 20131120
  Receipt Date: 20131120
  Transmission Date: 20140711
  Serious: Yes (Other)
  Sender: FDA-Public Use
  Company Number: DE-BRISTOL-MYERS SQUIBB COMPANY-19690544

PATIENT
  Age: 18 Year
  Sex: Female

DRUGS (1)
  1. ABILIFY TABS 10 MG [Suspect]
     Indication: SCHIZOPHRENIA
     Dosage: INITIALLY 5MG
     Dates: start: 201310

REACTIONS (1)
  - Visual impairment [Recovering/Resolving]
